FAERS Safety Report 10754825 (Version 1)
Quarter: 2015Q1

REPORT INFORMATION
  Report Type: Spontaneous
  Country: US (occurrence: None)
  Receive Date: 20150130
  Receipt Date: 20150130
  Transmission Date: 20150721
  Serious: Yes (Hospitalization)
  Sender: FDA-Public Use
  Company Number: None

PATIENT
  Age: 77 Year
  Sex: Female

DRUGS (4)
  1. WARFARIN 3 MG TABLETS [Suspect]
     Active Substance: WARFARIN
     Indication: ISCHAEMIC STROKE
     Dosage: 3 MG DAILY, SKIP THURS ORAL
     Route: 048
     Dates: start: 20110722, end: 20141227
  2. WARFARIN 3 MG TABLETS [Suspect]
     Active Substance: WARFARIN
     Indication: PULMONARY EMBOLISM
     Dosage: 3 MG DAILY, SKIP THURS ORAL
     Route: 048
     Dates: start: 20110722, end: 20141227
  3. ENOXAPARIN 80MG [Suspect]
     Active Substance: ENOXAPARIN
     Indication: PULMONARY EMBOLISM
     Route: 058
     Dates: start: 20141227, end: 20141228
  4. ENOXAPARIN 80MG [Suspect]
     Active Substance: ENOXAPARIN
     Indication: ISCHAEMIC STROKE
     Route: 058
     Dates: start: 20141227, end: 20141228

REACTIONS (1)
  - Haemorrhage intracranial [None]

NARRATIVE: CASE EVENT DATE: 20141228
